FAERS Safety Report 4824616-3 (Version None)
Quarter: 2005Q4

REPORT INFORMATION
  Report Type: 
  Country: None (occurrence: None)
  Receive Date: 20051108
  Receipt Date: 20051026
  Transmission Date: 20060501
  Serious: Yes (Death, Hospitalization)
  Sender: FDA-Public Use
  Company Number: EWC050946055

PATIENT
  Age: 14 Year
  Sex: Male
  Weight: 40 kg

DRUGS (7)
  1. XIGRIS [Suspect]
     Indication: SEPSIS
     Dosage: 24 MG/KG/HR
     Dates: start: 20050921, end: 20050924
  2. XIGRIS [Suspect]
  3. XIGRIS [Suspect]
  4. CEFOPERAZONE SODIUM [Concomitant]
  5. CLINDAMYCIN [Concomitant]
  6. MEROPENEM [Concomitant]
  7. HEPARIN [Concomitant]

REACTIONS (7)
  - BLOOD DISORDER [None]
  - CARDIOVASCULAR DISORDER [None]
  - INTRACRANIAL PRESSURE INCREASED [None]
  - METABOLIC ACIDOSIS [None]
  - MULTI-ORGAN DISORDER [None]
  - RENAL DISORDER [None]
  - RESPIRATORY DISORDER [None]
